FAERS Safety Report 5476582-8 (Version None)
Quarter: 2007Q4

REPORT INFORMATION
  Report Type: 
  Country: None (occurrence: None)
  Receive Date: 20071004
  Receipt Date: 20071002
  Transmission Date: 20080405
  Serious: Yes (Life-Threatening)
  Sender: FDA-Public Use
  Company Number: PHNR2007AU01925

PATIENT
  Age: 29 Year
  Sex: Female

DRUGS (4)
  1. OXYCONTIN [Concomitant]
     Dosage: 10 MG
     Dates: start: 20060608, end: 20060609
  2. CEFALOTIN SODIUM [Concomitant]
     Indication: PROPHYLAXIS
     Dosage: 3G DAILY
  3. TRAMADOL HCL [Concomitant]
     Indication: PAIN
     Dosage: 150MG DAILY
  4. SYNTOMETRINE [Suspect]
     Dosage: UNK, ONCE/SINGLE
     Dates: start: 20060608, end: 20060608

REACTIONS (3)
  - MUSCLE TWITCHING [None]
  - NAUSEA [None]
  - SWELLING FACE [None]
